FAERS Safety Report 12816607 (Version 1)
Quarter: 2016Q4

REPORT INFORMATION
  Report Type: Spontaneous
  Country: US (occurrence: US)
  Receive Date: 20161006
  Receipt Date: 20161006
  Transmission Date: 20170207
  Serious: No
  Sender: FDA-Public Use
  Company Number: US-NOVEN PHARMACEUTICALS, INC.-US2016000849

PATIENT

DRUGS (6)
  1. TURMERIC [Concomitant]
     Active Substance: TURMERIC
  2. COMBIPATCH [Suspect]
     Active Substance: ESTRADIOL\NORETHINDRONE ACETATE
     Indication: HOT FLUSH
     Dosage: 50/250MG, 2/WK
     Route: 062
     Dates: start: 201601, end: 2016
  3. MAGNESIUM [Concomitant]
     Active Substance: MAGNESIUM
  4. VITAMINS [Concomitant]
     Active Substance: VITAMINS
  5. CALCIUM [Concomitant]
     Active Substance: CALCIUM
  6. COMBIPATCH [Suspect]
     Active Substance: ESTRADIOL\NORETHINDRONE ACETATE
     Dosage: 50/140MG, 2/WK
     Route: 062
     Dates: start: 2016

REACTIONS (3)
  - Application site erythema [Not Recovered/Not Resolved]
  - Breast tenderness [Recovered/Resolved]
  - Application site pruritus [Recovered/Resolved]

NARRATIVE: CASE EVENT DATE: 2016
